FAERS Safety Report 18533091 (Version 3)
Quarter: 2020Q4

REPORT INFORMATION
  Report Type: Spontaneous
  Country: IT (occurrence: IT)
  Receive Date: 20201123
  Receipt Date: 20201220
  Transmission Date: 20210114
  Serious: Yes (Life-Threatening, Hospitalization, Other)
  Sender: FDA-Public Use
  Company Number: IT-JNJFOC-20201119141

PATIENT
  Age: 60 Year
  Sex: Female

DRUGS (17)
  1. FENTANYL. [Suspect]
     Active Substance: FENTANYL
     Indication: PRODUCT USED FOR UNKNOWN INDICATION
     Dosage: 0.1 MILLIGRAM
     Route: 065
  2. TICAGRELOR. [Interacting]
     Active Substance: TICAGRELOR
     Indication: ACUTE CORONARY SYNDROME
     Dosage: 90 MILLIGRAM
     Route: 065
  3. TIROFIBAN [Suspect]
     Active Substance: TIROFIBAN
     Dosage: 0.4 MICROGRAM/KILOGRAM, QMINUTE
     Route: 040
  4. WARFARIN [Suspect]
     Active Substance: WARFARIN
     Indication: ANTIPLATELET THERAPY
     Dosage: 30 MICROGRAM/KILOGRAM
     Route: 040
  5. RAMIPRIL. [Concomitant]
     Active Substance: RAMIPRIL
     Indication: PRODUCT USED FOR UNKNOWN INDICATION
     Dosage: 5 MILLIGRAM, QD
     Route: 065
  6. MORPHINE [Interacting]
     Active Substance: MORPHINE
     Indication: ANTIPLATELET THERAPY
     Dosage: 3 MILLIGRAM
     Route: 042
  7. ATORVASTATIN [Concomitant]
     Active Substance: ATORVASTATIN
     Indication: PRODUCT USED FOR UNKNOWN INDICATION
     Dosage: 80 MILLIGRAM, QD
     Route: 065
  8. BISOPROLOL [Concomitant]
     Active Substance: BISOPROLOL
     Indication: PRODUCT USED FOR UNKNOWN INDICATION
     Dosage: 2.5 MILLIGRAM, QD
     Route: 065
  9. ACETYLSALICYLIC ACID [Suspect]
     Active Substance: ASPIRIN
     Indication: ANTIPLATELET THERAPY
     Dosage: 100 MILLIGRAM, QD
     Route: 048
  10. TICAGRELOR. [Interacting]
     Active Substance: TICAGRELOR
     Indication: ANTIPLATELET THERAPY
     Dosage: 180 MILLIGRAM (LOADING DOSE OF TICAGRELOR WAS ADMINISTRATED AT THE END OF THE PROCEDURE)
     Route: 065
  11. CANGRELOR TETRASODIUM. [Suspect]
     Active Substance: CANGRELOR TETRASODIUM
     Indication: ANTIPLATELET THERAPY
     Dosage: 30 MICROGRAM/KILOGRAM
     Route: 040
  12. TIROFIBAN [Suspect]
     Active Substance: TIROFIBAN
     Indication: ANTIPLATELET THERAPY
     Dosage: 0.1 MICROGRAM/KILOGRAM, QMINUTE
     Route: 040
  13. EVEROLIMUS. [Suspect]
     Active Substance: EVEROLIMUS
     Indication: ACUTE MYOCARDIAL INFARCTION
     Route: 065
  14. ACETYLSALICYLIC ACID [Suspect]
     Active Substance: ASPIRIN
     Indication: ANTIPLATELET THERAPY
     Dosage: 250 MILLIGRAM
     Route: 042
  15. HEPARIN [Suspect]
     Active Substance: HEPARIN SODIUM
     Indication: PRODUCT USED FOR UNKNOWN INDICATION
     Dosage: UNK
     Route: 065
  16. CANGRELOR TETRASODIUM. [Suspect]
     Active Substance: CANGRELOR TETRASODIUM
     Dosage: 4 MICROGRAM/KILOGRAM, QMINUTE
     Route: 040
  17. EVEROLIMUS. [Suspect]
     Active Substance: EVEROLIMUS
     Indication: ACUTE CORONARY SYNDROME
     Dosage: UNK
     Route: 065

REACTIONS (14)
  - Colitis ischaemic [Unknown]
  - Thrombocytopenia [Unknown]
  - Acute myocardial infarction [Unknown]
  - Electrocardiogram ST segment elevation [Unknown]
  - Vascular stent thrombosis [Unknown]
  - Hypersensitivity [Unknown]
  - Eosinophilia [Unknown]
  - Eosinophil cationic protein increased [Unknown]
  - Rectal haemorrhage [Unknown]
  - Hypotension [Unknown]
  - Erythema [Unknown]
  - Nausea [Unknown]
  - Drug interaction [Unknown]
  - Drug level decreased [Unknown]
